FAERS Safety Report 8623484-1 (Version None)
Quarter: 2012Q3

REPORT INFORMATION
  Report Type: 
  Country: None (occurrence: None)
  Receive Date: 20120827
  Receipt Date: 20120821
  Transmission Date: 20120928
  Serious: Yes (Hospitalization, Other)
  Sender: FDA-Public Use
  Company Number: US-009507513-2012SP022373

PATIENT

DRUGS (1)
  1. NUVARING [Suspect]
     Indication: CONTRACEPTION
     Dosage: NUVARING
     Route: 067
     Dates: start: 20080701, end: 20090501

REACTIONS (12)
  - DEEP VEIN THROMBOSIS [None]
  - VENTRICULAR HYPERTROPHY [None]
  - MITRAL VALVE INCOMPETENCE [None]
  - PULMONARY ARTERY DILATATION [None]
  - THROMBOSIS [None]
  - CHEST PAIN [None]
  - PULMONARY VALVE INCOMPETENCE [None]
  - TONGUE ULCERATION [None]
  - PULMONARY EMBOLISM [None]
  - TRICUSPID VALVE INCOMPETENCE [None]
  - PAIN IN EXTREMITY [None]
  - ANTINUCLEAR ANTIBODY POSITIVE [None]
